FAERS Safety Report 19694034 (Version 1)
Quarter: 2021Q3

REPORT INFORMATION
  Report Type: Spontaneous
  Country: FR (occurrence: FR)
  Receive Date: 20210813
  Receipt Date: 20210813
  Transmission Date: 20211014
  Serious: Yes (Other)
  Sender: FDA-Public Use
  Company Number: FR-TEVA-2021-FR-1940798

PATIENT
  Age: 16 Year
  Sex: Female

DRUGS (10)
  1. MERCAPTOPURINE. [Suspect]
     Active Substance: MERCAPTOPURINE
     Indication: PRECURSOR T-LYMPHOBLASTIC LYMPHOMA/LEUKAEMIA
     Dosage: 95 MG / DAY IN CYCLES OF 4 DAYS, UNIT DOSE: 95 MG
     Route: 048
     Dates: start: 20210407, end: 20210604
  2. ASPARGINASE ((BACTERIE/ESCHERICHIA COLI)) [Suspect]
     Active Substance: ASPARAGINASE
     Indication: PRECURSOR T-LYMPHOBLASTIC LYMPHOMA/LEUKAEMIA
     Dosage: 3950 IU ON 05/05 AND 3900 IU ON 10/06, UNIT DOSE: 7850 IU
     Route: 042
     Dates: start: 20210505, end: 20210610
  3. PRIMPERAN [Concomitant]
     Active Substance: METOCLOPRAMIDE HYDROCHLORIDE
     Indication: PROPHYLAXIS OF NAUSEA AND VOMITING
     Dosage: SCORED TABLET, 10 MG, THERAPY START DATE: ASKU
     Route: 048
     Dates: end: 20210528
  4. HYDROCORTISONE. [Suspect]
     Active Substance: HYDROCORTISONE
     Indication: PRECURSOR T-LYMPHOBLASTIC LYMPHOMA/LEUKAEMIA
     Dosage: 15 MG ON 04/09 AND 05/21, UNIT DOSE: 30 MG
     Route: 037
     Dates: start: 20210409, end: 20210521
  5. METHOTREXATE. [Suspect]
     Active Substance: METHOTREXATE
     Indication: PRECURSOR T-LYMPHOBLASTIC LYMPHOMA/LEUKAEMIA
     Dosage: 15 MG ON 04/09 AND 05/21, UNIT DOSE: 30 MG
     Route: 037
     Dates: start: 20210409, end: 20210521
  6. ENANTONE LP [Suspect]
     Active Substance: LEUPROLIDE ACETATE
     Indication: CONTRACEPTION
     Dosage: MICROSPHERES AND SOLUTION FOR PARENTERAL USE (SC OR IM) PROLONGED RELEASE, 1 DF
     Route: 058
     Dates: start: 20210407
  7. VINCRISTINE (SULFATE DE) [Suspect]
     Active Substance: VINCRISTINE SULFATE
     Indication: PRECURSOR T-LYMPHOBLASTIC LYMPHOMA/LEUKAEMIA
     Dosage: 2 MG ON 05/05; 05/12; 06/10 AND 06/17, UNIT DOSE: 8 MG
     Route: 042
     Dates: start: 20210505, end: 20210617
  8. CYCLOPHOSPHAMIDE. [Suspect]
     Active Substance: CYCLOPHOSPHAMIDE
     Indication: PRECURSOR T-LYMPHOBLASTIC LYMPHOMA/LEUKAEMIA
     Dosage: 1560 MG ON 04/07 AND 1580 MG ON 05/19, UNIT DOSE: 3140 MG
     Route: 042
     Dates: start: 20210407, end: 20210519
  9. PLITICAN, SOLUTION INJECTABLE [Suspect]
     Active Substance: ALIZAPRIDE HYDROCHLORIDE
     Indication: PROPHYLAXIS OF NAUSEA AND VOMITING
     Dosage: 100 MG
     Route: 042
     Dates: start: 20210407, end: 20210706
  10. CYTARABINE. [Suspect]
     Active Substance: CYTARABINE
     Indication: PRECURSOR T-LYMPHOBLASTIC LYMPHOMA/LEUKAEMIA
     Dosage: 100 MG / DAY IV IN 4 COURSES OF 4 DAYS AND 30 MG INTRATHECAL ON 04/09 AND 05/21
     Route: 051
     Dates: start: 20210409, end: 20210603

REACTIONS (1)
  - Cholestasis [Recovered/Resolved]

NARRATIVE: CASE EVENT DATE: 20210528
